FAERS Safety Report 7124158-9 (Version None)
Quarter: 2010Q4

REPORT INFORMATION
  Report Type: 
  Country: None (occurrence: None)
  Receive Date: 20101126
  Receipt Date: 20101122
  Transmission Date: 20110411
  Serious: Yes (Hospitalization, Other)
  Sender: FDA-Public Use
  Company Number: JP-PFIZER INC-2010129173

PATIENT
  Age: 49 Year
  Sex: Female
  Weight: 57 kg

DRUGS (10)
  1. FARMORUBICIN [Suspect]
     Indication: BREAST CANCER
     Dosage: 150 MG, EVERY 3 WEEKS
     Route: 041
     Dates: start: 20090128, end: 20090402
  2. 5-FU [Suspect]
     Indication: BREAST CANCER
     Dosage: 750 MG, EVERY 3 WEEKS
     Route: 041
     Dates: start: 20090128, end: 20090402
  3. CYCLOPHOSPHAMIDE [Suspect]
     Indication: BREAST CANCER
     Dosage: 750 MG, EVERY 3 WEEKS
     Route: 041
     Dates: start: 20090128, end: 20090402
  4. GRANISETRON [Concomitant]
     Dosage: 3 MG, EVERY 3 WEEKS
     Route: 041
     Dates: start: 20090128, end: 20090402
  5. DECADRON [Concomitant]
     Dosage: 8 MG, EVERY 3 WEEKS
     Route: 041
     Dates: start: 20090128, end: 20090402
  6. RAMELTEON [Concomitant]
     Dosage: UNK
     Route: 048
     Dates: start: 20090128, end: 20090402
  7. PRIMPERAN [Concomitant]
     Dosage: UNK
     Route: 048
     Dates: start: 20090128, end: 20090402
  8. MUCOSTA [Concomitant]
     Dosage: UNK
     Route: 048
     Dates: start: 20090128, end: 20090402
  9. GASTER [Concomitant]
     Dosage: UNK
     Route: 048
     Dates: start: 20090128, end: 20090402
  10. VITAMEDIN CAPSULE [Concomitant]
     Dosage: UNK
     Route: 048
     Dates: start: 20090128, end: 20090402

REACTIONS (1)
  - HYPOTHYROIDISM [None]
